FAERS Safety Report 26021187 (Version 1)
Quarter: 2025Q4

REPORT INFORMATION
  Report Type: Spontaneous
  Country: EU (occurrence: EU)
  Receive Date: 20251110
  Receipt Date: 20251110
  Transmission Date: 20260118
  Serious: Yes (Hospitalization)
  Sender: BAUSCH AND LOMB
  Company Number: None

PATIENT
  Age: 38 Year
  Sex: Female
  Weight: 56.5 kg

DRUGS (3)
  1. VENLAFAXINE [Suspect]
     Active Substance: VENLAFAXINE HYDROCHLORIDE
     Indication: Poisoning deliberate
     Route: 065
     Dates: start: 20250921
  2. CYAMEMAZINE [Suspect]
     Active Substance: CYAMEMAZINE
     Indication: Poisoning deliberate
     Route: 065
     Dates: start: 20250921
  3. BROMAZEPAM [Suspect]
     Active Substance: BROMAZEPAM
     Indication: Poisoning deliberate
     Route: 065
     Dates: start: 20250921

REACTIONS (5)
  - Altered state of consciousness [Recovered/Resolved]
  - Hypothermia [Recovered/Resolved]
  - Sinus bradycardia [Recovered/Resolved]
  - Hypotension [Recovered/Resolved]
  - Poisoning deliberate [Unknown]

NARRATIVE: CASE EVENT DATE: 20250921
